FAERS Safety Report 8321023-6 (Version None)
Quarter: 2012Q2

REPORT INFORMATION
  Report Type: 
  Country: None (occurrence: None)
  Receive Date: 20120430
  Receipt Date: 20120426
  Transmission Date: 20120825
  Serious: Yes (Death, Hospitalization)
  Sender: FDA-Public Use
  Company Number: PHHY2012NL036101

PATIENT
  Age: 71 Year
  Sex: Male

DRUGS (2)
  1. PREDNISONE [Suspect]
     Indication: ARTHRITIS
     Dosage: UNK UKN, UNK
  2. ISONIAZID [Suspect]
     Indication: TUBERCULOSIS
     Dosage: UNK UKN, UNK

REACTIONS (10)
  - HEPATIC FAILURE [None]
  - HEPATORENAL SYNDROME [None]
  - ASCITES [None]
  - HEPATITIS B [None]
  - MALAISE [None]
  - LACTIC ACIDOSIS [None]
  - HEPATIC CIRRHOSIS [None]
  - ENCEPHALOPATHY [None]
  - GENERAL PHYSICAL HEALTH DETERIORATION [None]
  - WEIGHT DECREASED [None]
